FAERS Safety Report 14870962 (Version 1)
Quarter: 2018Q2

REPORT INFORMATION
  Report Type: Other
  Country: NO (occurrence: NO)
  Receive Date: 20180509
  Receipt Date: 20180509
  Transmission Date: 20180711
  Serious: Yes (Hospitalization, Other)
  Sender: FDA-Public Use
  Company Number: NO-CELLTRION INC.-2018NO019601

PATIENT

DRUGS (4)
  1. SALAZOPYRIN [Concomitant]
     Active Substance: SULFASALAZINE
     Indication: CROHN^S DISEASE
     Dosage: 1 G, EVERY 12 HOUR
     Route: 048
     Dates: start: 1991
  2. IMUREL                             /00001501/ [Concomitant]
     Active Substance: AZATHIOPRINE SODIUM
     Indication: CROHN^S DISEASE
     Dosage: 100 MG/DAY, DRUG DISCONTINUED
     Route: 048
     Dates: start: 201702
  3. REMSIMA [Suspect]
     Active Substance: INFLIXIMAB
     Indication: CROHN^S DISEASE
     Dosage: 300 MG, FREQUENCY: STARTUP: 1ST. DOSE WEEK 0, NEXT WEEK 2,THEN WEEK 6, THEN EVERY 8 WEEK
     Route: 042
     Dates: start: 201406, end: 201406
  4. REMSIMA [Suspect]
     Active Substance: INFLIXIMAB
     Dosage: 300 MG, FREQUENCY: STARTUP: 1ST. DOSE WEEK 0, NEXT WEEK 2,THEN WEEK 6, THEN EVERY 8 WEEK
     Route: 042
     Dates: start: 201610, end: 201610

REACTIONS (1)
  - Glioblastoma [Not Recovered/Not Resolved]

NARRATIVE: CASE EVENT DATE: 201702
